FAERS Safety Report 24451299 (Version 1)
Quarter: 2024Q4

REPORT INFORMATION
  Report Type: Spontaneous
  Country: GB (occurrence: GB)
  Receive Date: 20241017
  Receipt Date: 20241017
  Transmission Date: 20250115
  Serious: Yes (Other)
  Sender: ASCEND
  Company Number: GB-Ascend Therapeutics US, LLC-2163239

PATIENT
  Age: 49 Year
  Sex: Female

DRUGS (2)
  1. ESTROGEL [Suspect]
     Active Substance: ESTRADIOL
     Indication: Menopause
     Dates: start: 20240923, end: 20240929
  2. ESTRADIOL [Suspect]
     Active Substance: ESTRADIOL
     Dates: start: 20240923, end: 20240929

REACTIONS (3)
  - Amnesia [Recovering/Resolving]
  - Headache [Recovering/Resolving]
  - Confusional state [Recovered/Resolved]

NARRATIVE: CASE EVENT DATE: 20240927
